FAERS Safety Report 17958223 (Version 1)
Quarter: 2020Q2

REPORT INFORMATION
  Report Type: Spontaneous
  Country: RU (occurrence: RU)
  Receive Date: 20200629
  Receipt Date: 20200629
  Transmission Date: 20200714
  Serious: Yes (Other)
  Sender: FDA-Public Use
  Company Number: RU-SA-2020SA165349

PATIENT

DRUGS (31)
  1. METHYLDOPA. [Suspect]
     Active Substance: METHYLDOPA
     Dosage: 0.5 DF, TID
     Route: 064
     Dates: start: 20190830, end: 20190903
  2. OMEPRAZOLE. [Suspect]
     Active Substance: OMEPRAZOLE
     Dosage: 1 DF, BID
     Route: 064
     Dates: start: 20190820, end: 20191023
  3. AZATHIOPRINE. [Suspect]
     Active Substance: AZATHIOPRINE
     Dosage: 50 MG, QD, IN THE MORNING
     Route: 064
     Dates: start: 20191015, end: 20191021
  4. PLAQUENIL [Suspect]
     Active Substance: HYDROXYCHLOROQUINE SULFATE
     Dosage: 1 DF, BID
     Route: 064
     Dates: start: 20190820, end: 20191023
  5. METHYLDOPA. [Suspect]
     Active Substance: METHYLDOPA
     Dosage: 1.5 DF, QD
     Route: 064
     Dates: start: 20191011, end: 20191023
  6. LEVOTHYROXINE SODIUM. [Suspect]
     Active Substance: LEVOTHYROXINE SODIUM
     Route: 064
  7. DIPYRIDAMOLE. [Suspect]
     Active Substance: DIPYRIDAMOLE
     Dosage: 75 MG, BID
     Route: 064
     Dates: start: 20191011, end: 20191123
  8. FOLIC ACID. [Suspect]
     Active Substance: FOLIC ACID
     Dosage: 1 DF, TID
     Route: 064
     Dates: start: 20190820, end: 20191023
  9. AZATHIOPRINE. [Suspect]
     Active Substance: AZATHIOPRINE
     Dosage: 50 MG, BID
     Route: 064
     Dates: start: 20191021, end: 20191023
  10. CLEXANE [Suspect]
     Active Substance: ENOXAPARIN SODIUM
     Dosage: 0.4 UNK, QD
     Route: 064
     Dates: start: 20190820, end: 20190915
  11. CLEXANE [Suspect]
     Active Substance: ENOXAPARIN SODIUM
     Dosage: 0.4 UNK, BID
     Route: 064
     Dates: start: 20191011, end: 20191023
  12. NIFEDIPINE. [Suspect]
     Active Substance: NIFEDIPINE
     Dosage: 30 MG, QD
     Route: 064
     Dates: start: 20190911, end: 20190915
  13. PROGESTERONE. [Suspect]
     Active Substance: PROGESTERONE
     Dosage: 400 MG, QD, FROM 14 WEEKS
     Route: 064
  14. FOSFOMYCIN [Suspect]
     Active Substance: FOSFOMYCIN
     Dosage: 3 G, QW, ON FRIDAY
     Route: 064
     Dates: start: 20191009, end: 20191023
  15. METHYLPREDNISOLONE. [Suspect]
     Active Substance: METHYLPREDNISOLONE
     Dosage: SODIUM CHLORIDE SOLUTION 9%- 100.0 IV DRI PN MONDAY AND THURSDAY
     Route: 064
  16. NIFEDIPINE. [Suspect]
     Active Substance: NIFEDIPINE
     Dosage: 30 MG, QD
     Route: 064
     Dates: start: 20190906, end: 20190911
  17. FOSFOMYCIN [Suspect]
     Active Substance: FOSFOMYCIN
     Dosage: 3 G, HS
     Route: 064
     Dates: start: 20190919, end: 20191023
  18. CLEXANE [Suspect]
     Active Substance: ENOXAPARIN SODIUM
     Dosage: 0.4 UNK, BID
     Route: 064
     Dates: start: 20190916, end: 20190926
  19. METHYLDOPA. [Suspect]
     Active Substance: METHYLDOPA
     Dosage: 0.5 DF, QD
     Route: 064
     Dates: start: 20190827, end: 20190830
  20. METHYLDOPA. [Suspect]
     Active Substance: METHYLDOPA
     Dosage: 1.5 DF, QD
     Route: 064
     Dates: start: 20191009, end: 20191023
  21. CEFEPIME HYDROCHLORIDE. [Suspect]
     Active Substance: CEFEPIME HYDROCHLORIDE
     Dosage: UNK
     Route: 064
     Dates: start: 20190923, end: 20191001
  22. CEFTAROLINE FOSAMIL [Suspect]
     Active Substance: CEFTAROLINE FOSAMIL
     Dosage: 600  MG + SODIUM CHLORIDE SOLUTION 0.9% -100.0, EVERY 12 HOURS FOR 10 DAYS IV SLOWLY! WITHIN AN HOUR
     Route: 064
  23. PREDNISONE. [Suspect]
     Active Substance: PREDNISONE
     Dosage: 4 TABLETS IN THE MORNING ? 3 TABLETS AT NOON ? 1 TABLET IN THE EVENING
     Route: 064
     Dates: start: 20190820, end: 20191023
  24. METHYLPREDNISOLONE. [Suspect]
     Active Substance: METHYLPREDNISOLONE
     Dosage: SODIUM CHLORIDE SOLUTION 0.9% - 100.0 IV WITHIN 30 MIN
     Route: 064
  25. NIFEDIPINE. [Suspect]
     Active Substance: NIFEDIPINE
     Dosage: 30 MG, BID
     Route: 064
     Dates: start: 20190819, end: 20190917
  26. NIFEDIPINE. [Suspect]
     Active Substance: NIFEDIPINE
     Dosage: 60 MG IN THE MORNING +30 MG IN THE EVENING
     Route: 064
     Dates: start: 20190917, end: 20191023
  27. SUPRASTIN [Suspect]
     Active Substance: CHLOROPYRAMINE HYDROCHLORIDE
     Dosage: 1 DF, HS
     Route: 064
     Dates: start: 20190903, end: 20190905
  28. METHYLPREDNISOLONE. [Suspect]
     Active Substance: METHYLPREDNISOLONE
     Dosage: 8 DF, QD
     Route: 064
  29. FERRIC HYDROXIDE POLYMALTOSE COMPLEX [Suspect]
     Active Substance: IRON POLYMALTOSE
     Dosage: 1 DF, TID
     Route: 064
     Dates: start: 20190820, end: 20191023
  30. MAGNESIUM SULFATE. [Suspect]
     Active Substance: MAGNESIUM SULFATE
     Route: 064
  31. SUPRASTIN [Suspect]
     Active Substance: CHLOROPYRAMINE HYDROCHLORIDE
     Dosage: 1 DF, BID
     Route: 064
     Dates: start: 20190905, end: 20191023

REACTIONS (4)
  - Premature baby [Unknown]
  - Foetal growth restriction [Unknown]
  - Placental insufficiency [Unknown]
  - Foetal exposure during pregnancy [Unknown]
